FAERS Safety Report 5086178-8 (Version None)
Quarter: 2006Q3

REPORT INFORMATION
  Report Type: 
  Country: None (occurrence: None)
  Receive Date: 20060818
  Receipt Date: 20060802
  Transmission Date: 20061208
  Serious: Yes (Other)
  Sender: FDA-Public Use
  Company Number: 2006098731

PATIENT

DRUGS (1)
  1. XANAX [Suspect]
     Indication: DRUG USE FOR UNKNOWN INDICATION
     Dosage: 1 MG ( 1 MG, 1 IN 1 D), ORAL
     Route: 048

REACTIONS (1)
  - DRUG ABUSER [None]
